FAERS Safety Report 9391142 (Version 1)
Quarter: 2013Q3

REPORT INFORMATION
  Report Type: Spontaneous
  Country: KR (occurrence: KR)
  Receive Date: 20130709
  Receipt Date: 20130709
  Transmission Date: 20140515
  Serious: No
  Sender: FDA-Public Use
  Company Number: KR-JNJFOC-20130701050

PATIENT
  Sex: 0

DRUGS (2)
  1. DUROGESIC D-TRANS [Suspect]
     Indication: PRODUCT USED FOR UNKNOWN INDICATION
     Route: 062
  2. DUROGESIC D-TRANS [Suspect]
     Indication: PRODUCT USED FOR UNKNOWN INDICATION
     Dosage: APPLIED HALF A PATCH
     Route: 062

REACTIONS (2)
  - Somnolence [Unknown]
  - Drug administration error [Unknown]
